FAERS Safety Report 5819703-7 (Version None)
Quarter: 2008Q3

REPORT INFORMATION
  Report Type: 
  Country: None (occurrence: None)
  Receive Date: 20080723
  Receipt Date: 20080710
  Transmission Date: 20090109
  Serious: Yes (Hospitalization, Other)
  Sender: FDA-Public Use
  Company Number: CA-ELI_LILLY_AND_COMPANY-CA200806002861

PATIENT
  Age: 51 Year
  Sex: Female

DRUGS (6)
  1. FORTEO [Suspect]
     Indication: OSTEOPOROSIS
     Dosage: 20 UG, DAILY (1/D)
     Route: 058
     Dates: start: 20080306
  2. URSODIOL [Concomitant]
  3. ATASOL [Concomitant]
  4. TYLENOL W/ CODEINE NO. 3 [Concomitant]
  5. VITAMIN D [Concomitant]
  6. CALCIUM [Concomitant]

REACTIONS (7)
  - ABDOMINAL ABSCESS [None]
  - ABDOMINAL PAIN [None]
  - CROHN'S DISEASE [None]
  - FISTULA [None]
  - NAUSEA [None]
  - PYREXIA [None]
  - TREMOR [None]
